FAERS Safety Report 7737461-6 (Version None)
Quarter: 2011Q3

REPORT INFORMATION
  Report Type: 
  Country: None (occurrence: None)
  Receive Date: 20110908
  Receipt Date: 20110829
  Transmission Date: 20111222
  Serious: Yes (Death)
  Sender: FDA-Public Use
  Company Number: US-GLAXOSMITHKLINE-A0921145A

PATIENT
  Age: 41 Year
  Sex: Female

DRUGS (1)
  1. TYKERB [Suspect]
     Indication: NEOPLASM MALIGNANT
     Dosage: 1250MGD PER DAY
     Route: 048
     Dates: start: 20101101, end: 20110215

REACTIONS (1)
  - NEOPLASM MALIGNANT [None]
